FAERS Safety Report 10373192 (Version 1)
Quarter: 2014Q3

REPORT INFORMATION
  Report Type: Spontaneous
  Country: US (occurrence: US)
  Receive Date: 20140808
  Receipt Date: 20140808
  Transmission Date: 20150326
  Serious: No
  Sender: FDA-Public Use
  Company Number: US-BRISTOL-MYERS SQUIBB COMPANY-20167128

PATIENT
  Age: 51 Year
  Sex: Male

DRUGS (1)
  1. SPRYCEL [Suspect]
     Active Substance: DASATINIB
     Dosage: LAST DOSE: 26JAN

REACTIONS (4)
  - Lethargy [Unknown]
  - Feeling abnormal [Unknown]
  - Constipation [Unknown]
  - Drug dose omission [Unknown]
